FAERS Safety Report 5619857-1 (Version None)
Quarter: 2008Q1

REPORT INFORMATION
  Report Type: 
  Country: None (occurrence: None)
  Receive Date: 20080208
  Receipt Date: 20080204
  Transmission Date: 20080703
  Serious: Yes (Other)
  Sender: FDA-Public Use
  Company Number: US-ASTRAZENECA-2007UW27480

PATIENT
  Age: 60 Year
  Sex: Female
  Weight: 66.2 kg

DRUGS (2)
  1. ARIMIDEX [Suspect]
     Indication: BREAST CANCER
     Route: 048
     Dates: start: 20071201
  2. XANAX [Concomitant]

REACTIONS (8)
  - ANXIETY [None]
  - ARTHRALGIA [None]
  - DEPRESSION SUICIDAL [None]
  - FATIGUE [None]
  - FEELING OF BODY TEMPERATURE CHANGE [None]
  - HOT FLUSH [None]
  - INSOMNIA [None]
  - NAUSEA [None]
